FAERS Safety Report 8159549-0 (Version None)
Quarter: 2012Q1

REPORT INFORMATION
  Report Type: 
  Country: None (occurrence: None)
  Receive Date: 20120223
  Receipt Date: 20120209
  Transmission Date: 20120608
  Serious: Yes (Other)
  Sender: FDA-Public Use
  Company Number: CA-ROCHE-1039082

PATIENT
  Sex: Female
  Weight: 54.48 kg

DRUGS (10)
  1. METHOTREXATE [Concomitant]
     Route: 048
  2. ACTONEL [Concomitant]
  3. NAPROXEN [Concomitant]
  4. CORTISONE ACETATE [Concomitant]
     Route: 058
  5. VITAMIN D [Concomitant]
  6. FOLIC ACID [Concomitant]
  7. PANTOPRAZOLE [Concomitant]
  8. CALCIUM [Concomitant]
  9. ACTEMRA [Suspect]
     Indication: RHEUMATOID ARTHRITIS
     Route: 042
     Dates: start: 20110331
  10. PLAQUENIL [Concomitant]

REACTIONS (3)
  - SYSTEMIC LUPUS ERYTHEMATOSUS [None]
  - JOINT STIFFNESS [None]
  - MYALGIA [None]
